FAERS Safety Report 14611104 (Version 1)
Quarter: 2018Q1

REPORT INFORMATION
  Report Type: Other
  Country: IT (occurrence: IT)
  Receive Date: 20180308
  Receipt Date: 20180308
  Transmission Date: 20180509
  Serious: Yes (Hospitalization, Other)
  Sender: FDA-Public Use
  Company Number: IT-VELOXIS PHARMACEUTICALS-2043216

PATIENT
  Age: 67 Year
  Sex: Female

DRUGS (5)
  1. BENZYLPENICILLIN [Concomitant]
     Active Substance: PENICILLIN G
  2. MYCOPHENOLATE MOFETIL. [Suspect]
     Active Substance: MYCOPHENOLATE MOFETIL
     Route: 065
  3. CIPROFLOXACIN. [Concomitant]
     Active Substance: CIPROFLOXACIN
  4. TACROLIMUS. [Suspect]
     Active Substance: TACROLIMUS
     Route: 065
  5. ENVARSUS XR [Suspect]
     Active Substance: TACROLIMUS
     Indication: RENAL TRANSPLANT
     Route: 065

REACTIONS (2)
  - Malacoplakia gastrointestinal [Recovered/Resolved]
  - Rhodococcus infection [Recovered/Resolved]
